FAERS Safety Report 6130128-X (Version None)
Quarter: 2009Q1

REPORT INFORMATION
  Report Type: 
  Country: None (occurrence: None)
  Receive Date: 20090324
  Receipt Date: 20090311
  Transmission Date: 20090719
  Serious: Yes (Death, Other)
  Sender: FDA-Public Use
  Company Number: US-AMGEN-US333106

PATIENT
  Sex: Male
  Weight: 148 kg

DRUGS (11)
  1. NPLATE [Suspect]
     Indication: IDIOPATHIC THROMBOCYTOPENIC PURPURA
     Dates: start: 20081218, end: 20090127
  2. WARFARIN SODIUM [Concomitant]
     Route: 048
  3. GLUCOTROL [Concomitant]
     Route: 048
  4. PREDNISONE [Concomitant]
     Route: 048
  5. MULTI-VITAMINS [Concomitant]
  6. LASIX [Concomitant]
  7. ALLOPURINOL [Concomitant]
     Route: 048
  8. AMIODARONE HCL [Concomitant]
     Route: 048
  9. METOLAZONE [Concomitant]
     Route: 048
  10. BUMETANIDE [Concomitant]
     Route: 048
  11. WELCHOL [Concomitant]
     Route: 048

REACTIONS (5)
  - BLISTER [None]
  - CARDIAC FAILURE CONGESTIVE [None]
  - CHRONIC OBSTRUCTIVE PULMONARY DISEASE [None]
  - PLATELET COUNT DECREASED [None]
  - WEIGHT DECREASED [None]
